FAERS Safety Report 17916752 (Version 1)
Quarter: 2020Q2

REPORT INFORMATION
  Report Type: Spontaneous
  Country: US (occurrence: US)
  Receive Date: 20200619
  Receipt Date: 20200619
  Transmission Date: 20200714
  Serious: No
  Sender: FDA-Public Use
  Company Number: None

PATIENT
  Age: 55 Year
  Sex: Female
  Weight: 54 kg

DRUGS (16)
  1. PROGESTERONE. [Concomitant]
     Active Substance: PROGESTERONE
  2. VITAMIN B12 [Concomitant]
     Active Substance: CYANOCOBALAMIN
  3. KLONOPIN [Concomitant]
     Active Substance: CLONAZEPAM
  4. AMBIEN [Concomitant]
     Active Substance: ZOLPIDEM TARTRATE
  5. L-ARGININE [Concomitant]
     Active Substance: ARGININE
  6. CALTRATE [Concomitant]
     Active Substance: CALCIUM CARBONATE
  7. DHEA [Concomitant]
     Active Substance: PRASTERONE
  8. ZIPRASIDONE HCL [Suspect]
     Active Substance: ZIPRASIDONE HYDROCHLORIDE
     Indication: BIPOLAR I DISORDER
     Dosage: ?          QUANTITY:1 CAPSULE(S);?
     Route: 048
     Dates: start: 20200617
  9. ABILIFY [Concomitant]
     Active Substance: ARIPIPRAZOLE
  10. SOMA [Concomitant]
     Active Substance: CARISOPRODOL
  11. XANAX [Concomitant]
     Active Substance: ALPRAZOLAM
  12. BHRT-ESTRADIOL AND TESTOSTERONE PELLETS [Concomitant]
  13. WELLBUTRIN [Concomitant]
     Active Substance: BUPROPION HYDROCHLORIDE
  14. MOBIC [Concomitant]
     Active Substance: MELOXICAM
  15. PROBIOTIC [Concomitant]
     Active Substance: PROBIOTICS NOS
  16. IMMUNE SUPPORT [Concomitant]

REACTIONS (1)
  - Dysarthria [None]

NARRATIVE: CASE EVENT DATE: 20200618
